FAERS Safety Report 5716619-1 (Version None)
Quarter: 2008Q2

REPORT INFORMATION
  Report Type: 
  Country: None (occurrence: None)
  Receive Date: 20080424
  Receipt Date: 20080411
  Transmission Date: 20081010
  Serious: Yes (Death, Other)
  Sender: FDA-Public Use
  Company Number: BE-AMGEN-UK271395

PATIENT
  Sex: Female

DRUGS (9)
  1. NEULASTA [Suspect]
     Indication: CHEMOTHERAPY
     Route: 058
     Dates: start: 20080209
  2. BLEOMYCIN SULFATE [Suspect]
     Route: 042
     Dates: start: 20080124, end: 20080306
  3. RITUXIMAB [Concomitant]
     Route: 042
     Dates: start: 20080124, end: 20080306
  4. CYTARABINE [Concomitant]
     Route: 042
     Dates: start: 20080124, end: 20080306
  5. VINDESINE [Concomitant]
     Route: 042
     Dates: start: 20080124, end: 20080306
  6. MEPRAL [Concomitant]
     Route: 048
     Dates: start: 20080124, end: 20080306
  7. ETOPOSIDE [Concomitant]
     Route: 042
     Dates: start: 20080124, end: 20080306
  8. ARANESP [Concomitant]
     Route: 065
     Dates: start: 20080306
  9. EPOETIN BETA [Concomitant]
     Route: 065
     Dates: start: 20080307

REACTIONS (1)
  - RESPIRATORY DISORDER [None]
